FAERS Safety Report 7541068-3 (Version None)
Quarter: 2011Q2

REPORT INFORMATION
  Report Type: 
  Country: None (occurrence: None)
  Receive Date: 20110610
  Receipt Date: 20110607
  Transmission Date: 20111010
  Serious: Yes (Death, Hospitalization)
  Sender: FDA-Public Use
  Company Number: DE-ROCHE-705572

PATIENT
  Age: 61 Year
  Sex: Male
  Weight: 78 kg

DRUGS (11)
  1. SPIRIVA [Concomitant]
     Dates: start: 20100429
  2. CAPVAL [Concomitant]
     Dosage: TDD: 30 GTTS
     Dates: start: 20100429
  3. ACETYLCYSTEINE [Concomitant]
     Dates: start: 20070101
  4. LENDORMIN [Concomitant]
     Dates: start: 20100429
  5. METOCLOPRAMIDE [Concomitant]
     Dosage: TTD: 60 GGTS
     Dates: start: 20100429
  6. CISPLATIN [Suspect]
     Indication: NON-SMALL CELL LUNG CANCER
     Dosage: FORM: INFUSION.
     Route: 042
     Dates: start: 20100504
  7. BEVACIZUMAB [Suspect]
     Indication: NON-SMALL CELL LUNG CANCER
     Dosage: FORM: INFUSION.
     Route: 042
     Dates: start: 20100504
  8. PEMETREXED [Suspect]
     Indication: NON-SMALL CELL LUNG CANCER
     Dosage: FORM: INFUSION
     Route: 042
     Dates: start: 20100504
  9. FENTANYL [Concomitant]
     Dosage: DRUG: REPORTED AS FENTANYL TTS.
     Dates: start: 20100413
  10. FOLSAURE [Concomitant]
     Dates: start: 20100429
  11. PANTOPRAZOLE [Concomitant]
     Dates: start: 20100415

REACTIONS (2)
  - BRONCHOPLEURAL FISTULA [None]
  - HAEMOPTYSIS [None]
